FAERS Safety Report 9766249 (Version 1)
Quarter: 2013Q4

REPORT INFORMATION
  Report Type: Spontaneous
  Country: US (occurrence: US)
  Receive Date: 20131217
  Receipt Date: 20131217
  Transmission Date: 20140711
  Serious: No
  Sender: FDA-Public Use
  Company Number: US-GLAXOSMITHKLINE-A1023717A

PATIENT
  Age: 71 Year
  Sex: Female

DRUGS (3)
  1. VOTRIENT [Suspect]
     Indication: RENAL CELL CARCINOMA
     Dosage: 800MG PER DAY
     Route: 048
     Dates: start: 20130507, end: 20130513
  2. ENALAPRIL [Concomitant]
  3. AMLODIPINE [Concomitant]

REACTIONS (1)
  - Blood pressure increased [Recovering/Resolving]
